FAERS Safety Report 21636399 (Version 1)
Quarter: 2022Q4

REPORT INFORMATION
  Report Type: Report from Study
  Country: PR (occurrence: PR)
  Receive Date: 20221124
  Receipt Date: 20221124
  Transmission Date: 20230113
  Serious: No
  Sender: FDA-Public Use
  Company Number: PR-ABBVIE-4209806

PATIENT
  Sex: Female
  Weight: 89.811 kg

DRUGS (1)
  1. VENCLEXTA [Suspect]
     Active Substance: VENETOCLAX
     Indication: Chronic lymphocytic leukaemia
     Dosage: FREQUENCY TEXT: DAILY
     Route: 048
     Dates: start: 20211102

REACTIONS (3)
  - Bone pain [Unknown]
  - Pain of skin [Unknown]
  - Alopecia [Unknown]
